FAERS Safety Report 18243446 (Version 2)
Quarter: 2020Q4

REPORT INFORMATION
  Report Type: Spontaneous
  Country: US (occurrence: US)
  Receive Date: 20200908
  Receipt Date: 20201204
  Transmission Date: 20210113
  Serious: No
  Sender: FDA-Public Use
  Company Number: US-HARMONY BIOSCIENCES-2020HMY01016

PATIENT
  Age: 40 Year
  Sex: Female
  Weight: 61.68 kg

DRUGS (13)
  1. WAKIX [Suspect]
     Active Substance: PITOLISANT HYDROCHLORIDE
     Dosage: 35.6 MG, 1X/DAY
     Route: 048
     Dates: start: 2020, end: 20200630
  2. ZYRTEC [Concomitant]
     Active Substance: CETIRIZINE HYDROCHLORIDE
  3. WAKIX [Suspect]
     Active Substance: PITOLISANT HYDROCHLORIDE
     Indication: NARCOLEPSY
     Dosage: 17.8 MG, 1X/DAY
     Route: 048
     Dates: start: 2020, end: 2020
  4. EVEKEO [Suspect]
     Active Substance: AMPHETAMINE SULFATE
     Dosage: UNK
     Dates: end: 202007
  5. CITALOPRAM [Concomitant]
     Active Substance: CITALOPRAM HYDROBROMIDE
     Dosage: 20 MG, 1X/DAY
  6. LYSINE [Concomitant]
     Active Substance: LYSINE
  7. DOXYCYCLINE. [Suspect]
     Active Substance: DOXYCYCLINE
     Indication: LYME DISEASE
     Dosage: UNK
     Dates: start: 20200413, end: 202004
  8. B6 [Concomitant]
     Active Substance: PYRIDOXINE HYDROCHLORIDE
  9. WAKIX [Suspect]
     Active Substance: PITOLISANT HYDROCHLORIDE
     Dosage: 17.8 MG, 1X/DAY
     Route: 048
     Dates: start: 20200701, end: 20200715
  10. EVEKEO [Suspect]
     Active Substance: AMPHETAMINE SULFATE
     Dosage: DOSAGE LOWERED
     Dates: start: 202007
  11. OMEGA [Concomitant]
  12. VITAMIN D3 [Concomitant]
     Active Substance: CHOLECALCIFEROL
  13. NIKKI [Concomitant]
     Active Substance: DROSPIRENONE\ETHINYL ESTRADIOL

REACTIONS (19)
  - Lyme disease [Unknown]
  - Dermatitis contact [Recovered/Resolved]
  - Rash [Recovered/Resolved]
  - Exposure to toxic agent [Recovered/Resolved]
  - Pain [Unknown]
  - Candida infection [Unknown]
  - Sleep disorder [Not Recovered/Not Resolved]
  - Insomnia [Recovering/Resolving]
  - Weight increased [Unknown]
  - Neck pain [Unknown]
  - Initial insomnia [Recovering/Resolving]
  - Therapeutic product effect decreased [Recovered/Resolved]
  - Arthropod bite [Recovered/Resolved]
  - Headache [Unknown]
  - Pyrexia [Unknown]
  - Visual impairment [Not Recovered/Not Resolved]
  - Asthenia [Not Recovered/Not Resolved]
  - Somnolence [Unknown]
  - Restless legs syndrome [Recovered/Resolved]

NARRATIVE: CASE EVENT DATE: 2020
